FAERS Safety Report 5121725-9 (Version None)
Quarter: 2006Q4

REPORT INFORMATION
  Report Type: 
  Country: None (occurrence: None)
  Receive Date: 20061006
  Receipt Date: 20060929
  Transmission Date: 20070319
  Serious: Yes (Hospitalization)
  Sender: FDA-Public Use
  Company Number: US-AVENTIS-200618269US

PATIENT
  Sex: Female

DRUGS (2)
  1. LANTUS [Suspect]
     Indication: DIABETES MELLITUS
     Dosage: DOSE: UNK
  2. HUMALOG                            /01293501/ [Concomitant]
     Dosage: DOSE: UNK

REACTIONS (2)
  - HYPOGLYCAEMIA [None]
  - SUICIDE ATTEMPT [None]
